FAERS Safety Report 5975659-8 (Version None)
Quarter: 2008Q4

REPORT INFORMATION
  Report Type: 
  Country: None (occurrence: None)
  Receive Date: 20081202
  Receipt Date: 20081110
  Transmission Date: 20090506
  Serious: Yes (Other)
  Sender: FDA-Public Use
  Company Number: US-PFIZER INC-2008095289

PATIENT

DRUGS (1)
  1. SILDENAFIL CITRATE [Suspect]

REACTIONS (1)
  - BLINDNESS [None]
